FAERS Safety Report 11225290 (Version 2)
Quarter: 2015Q3

REPORT INFORMATION
  Report Type: Report from Study
  Country: US (occurrence: US)
  Receive Date: 20150629
  Receipt Date: 20150715
  Transmission Date: 20151125
  Serious: Yes (Other)
  Sender: FDA-Public Use
  Company Number: US-ACTELION-A-NJ2015-119895

PATIENT
  Age: 80 Year
  Sex: Male

DRUGS (2)
  1. MACITENTAN [Suspect]
     Active Substance: MACITENTAN
     Indication: PULMONARY ARTERIAL HYPERTENSION
     Dosage: 10 MG, QD
     Route: 048
  2. RIOCIGUAT [Concomitant]
     Active Substance: RIOCIGUAT

REACTIONS (2)
  - Vascular occlusion [Unknown]
  - Peripheral swelling [Unknown]
